FAERS Safety Report 7569423-6 (Version None)
Quarter: 2011Q2

REPORT INFORMATION
  Report Type: 
  Country: None (occurrence: None)
  Receive Date: 20110624
  Receipt Date: 20110621
  Transmission Date: 20111010
  Serious: Yes (Other)
  Sender: FDA-Public Use
  Company Number: GR-BRISTOL-MYERS SQUIBB COMPANY-15845852

PATIENT

DRUGS (1)
  1. BARACLUDE [Suspect]
     Indication: HEPATITIS B
     Dosage: 1 TAB 0.5MG/PER DAY FOR 15 DAYS,REDUCED TO 1 TAB OF 0.5MG EVERY 3 DAYS
     Route: 048

REACTIONS (1)
  - ENCEPHALOPATHY [None]
